FAERS Safety Report 4920018-X (Version None)
Quarter: 2006Q1

REPORT INFORMATION
  Report Type: 
  Country: None (occurrence: None)
  Receive Date: 20060223
  Receipt Date: 20060119
  Transmission Date: 20060701
  Serious: Yes (Hospitalization)
  Sender: FDA-Public Use
  Company Number: 2006CG00146

PATIENT
  Age: 83 Year
  Sex: Female
  Weight: 61 kg

DRUGS (8)
  1. OMEPRAZOLE [Suspect]
     Route: 048
  2. APROVEL [Interacting]
     Route: 048
  3. LASILIX [Interacting]
     Route: 048
  4. CORDARONE [Concomitant]
     Route: 048
  5. PRAZEPAM [Concomitant]
     Route: 048
  6. DIAFUSOR [Concomitant]
  7. VOLTAREN [Concomitant]
     Indication: ARTHRALGIA
     Dates: start: 20051221
  8. VOLTAREN [Concomitant]
     Indication: OSTEOARTHRITIS
     Dates: start: 20051221

REACTIONS (6)
  - DIZZINESS [None]
  - DRUG INTERACTION [None]
  - HEADACHE [None]
  - HYPONATRAEMIA [None]
  - INCORRECT DOSE ADMINISTERED [None]
  - VOMITING [None]
